FAERS Safety Report 8200590 (Version 3)
Quarter: 2017Q1

REPORT INFORMATION
  Report Type: Spontaneous
  Country: US (occurrence: US)
  Receive Date: 20111026
  Receipt Date: 20170213
  Transmission Date: 20170429
  Serious: Yes (Congenital Anomaly, Other)
  Sender: FDA-Public Use
  Company Number: US-GLAXOSMITHKLINE-A0950464A

PATIENT
  Age: 0 Day
  Sex: Female

DRUGS (4)
  1. PAXIL [Suspect]
     Active Substance: PAROXETINE HYDROCHLORIDE
     Dosage: 40 MG, QD
     Route: 064
  2. PAXIL [Suspect]
     Active Substance: PAROXETINE HYDROCHLORIDE
     Indication: PANIC ATTACK
     Dosage: 20 MG, QD
     Route: 064
  3. PAXIL [Suspect]
     Active Substance: PAROXETINE HYDROCHLORIDE
     Indication: PRODUCT USED FOR UNKNOWN INDICATION
     Dosage: 20 MG, BID
     Route: 064
  4. CELESTONE [Concomitant]
     Active Substance: BETAMETHASONE
     Route: 064
     Dates: start: 199606

REACTIONS (8)
  - Talipes [Unknown]
  - Neurogenic bladder [Unknown]
  - Hydrocephalus [Unknown]
  - Arnold-Chiari malformation [Unknown]
  - Congenital central nervous system anomaly [Unknown]
  - Spina bifida [Unknown]
  - Foetal exposure during pregnancy [Unknown]
  - Meningomyelocele [Unknown]

NARRATIVE: CASE EVENT DATE: 19960701
